FAERS Safety Report 12467111 (Version 1)
Quarter: 2016Q2

REPORT INFORMATION
  Report Type: Spontaneous
  Country: US (occurrence: None)
  Receive Date: 20160614
  Receipt Date: 20160614
  Transmission Date: 20160815
  Serious: No
  Sender: FDA-Public Use
  Company Number: None

PATIENT
  Age: 34 Year
  Sex: Female
  Weight: 81.65 kg

DRUGS (2)
  1. MAKENA [Suspect]
     Active Substance: HYDROXYPROGESTERONE CAPROATE
     Indication: PREMATURE LABOUR
     Dosage: 18 INJECTION(S) AS NEEDED INTO THE MUSCLE
     Route: 030
     Dates: start: 20021128, end: 20160512
  2. MAKENA [Suspect]
     Active Substance: HYDROXYPROGESTERONE CAPROATE
     Indication: PROPHYLAXIS
     Dosage: 18 INJECTION(S) AS NEEDED INTO THE MUSCLE
     Route: 030
     Dates: start: 20021128, end: 20160512

REACTIONS (4)
  - Syncope [None]
  - Injection site pruritus [None]
  - Injection site mass [None]
  - Dizziness [None]

NARRATIVE: CASE EVENT DATE: 20160512
